FAERS Safety Report 17915060 (Version 1)
Quarter: 2020Q2

REPORT INFORMATION
  Report Type: Spontaneous
  Country: TR (occurrence: TR)
  Receive Date: 20200619
  Receipt Date: 20200619
  Transmission Date: 20200714
  Serious: Yes (Other)
  Sender: FDA-Public Use
  Company Number: TR-ROCHE-2621383

PATIENT
  Sex: Male

DRUGS (1)
  1. OCREVUS [Suspect]
     Active Substance: OCRELIZUMAB
     Indication: MULTIPLE SCLEROSIS
     Dosage: SUBSEQUENT INFUSION RECEIVED ON 11/JAN/2019, 11/JUN/2019 AND 11/DEC/2019
     Route: 041
     Dates: start: 20181227

REACTIONS (1)
  - Clear cell renal cell carcinoma [Not Recovered/Not Resolved]
